FAERS Safety Report 11198539 (Version 1)
Quarter: 2015Q2

REPORT INFORMATION
  Report Type: Spontaneous
  Country: US (occurrence: None)
  Receive Date: 20150603
  Receipt Date: 20150603
  Transmission Date: 20150821
  Serious: No
  Sender: FDA-Public Use
  Company Number: US-MDCO-15-00090

PATIENT
  Sex: Male

DRUGS (2)
  1. ORBACTIV [Suspect]
     Active Substance: ORITAVANCIN
     Indication: OSTEOMYELITIS
     Dates: start: 20150219
  2. VANCOMYCIN (VANCOMYCIN) (VANCOMYCIN) [Concomitant]
     Active Substance: VANCOMYCIN

REACTIONS (1)
  - Off label use [None]
